FAERS Safety Report 7765426-7 (Version None)
Quarter: 2011Q3

REPORT INFORMATION
  Report Type: 
  Country: None (occurrence: None)
  Receive Date: 20110921
  Receipt Date: 20110915
  Transmission Date: 20111222
  Serious: Yes (Death, Other)
  Sender: FDA-Public Use
  Company Number: JP-BRISTOL-MYERS SQUIBB COMPANY-16064511

PATIENT
  Age: 79 Year
  Sex: Male

DRUGS (1)
  1. TAXOL [Suspect]
     Indication: SMALL INTESTINE CARCINOMA
     Route: 041
     Dates: start: 20110831, end: 20110907

REACTIONS (2)
  - CARDIO-RESPIRATORY ARREST [None]
  - LOSS OF CONSCIOUSNESS [None]
